FAERS Safety Report 8901211 (Version 5)
Quarter: 2015Q4

REPORT INFORMATION
  Report Type: Spontaneous
  Country: CA (occurrence: CA)
  Receive Date: 20121109
  Receipt Date: 20151002
  Transmission Date: 20160305
  Serious: Yes (Other)
  Sender: FDA-Public Use
  Company Number: CA-ROCHE-1153852

PATIENT
  Age: 51 Year
  Sex: Female

DRUGS (5)
  1. XOLAIR [Suspect]
     Active Substance: OMALIZUMAB
     Indication: ASTHMA
     Route: 058
     Dates: start: 20081208
  2. SINGULAIR [Concomitant]
     Active Substance: MONTELUKAST SODIUM
  3. PREDNISONE. [Concomitant]
     Active Substance: PREDNISONE
  4. XOLAIR [Suspect]
     Active Substance: OMALIZUMAB
     Route: 058
     Dates: start: 20090330
  5. XOLAIR [Suspect]
     Active Substance: OMALIZUMAB
     Route: 058
     Dates: start: 20091207

REACTIONS (7)
  - Impaired driving ability [Unknown]
  - Arthritis [Unknown]
  - Headache [Unknown]
  - Photophobia [Unknown]
  - Asthma [Recovering/Resolving]
  - Seasonal allergy [Unknown]
  - Fatigue [Unknown]

NARRATIVE: CASE EVENT DATE: 2012
